FAERS Safety Report 19741633 (Version 2)
Quarter: 2022Q2

REPORT INFORMATION
  Report Type: 
  Country: GB (occurrence: GB)
  Receive Date: 20210824
  Receipt Date: 20220524
  Transmission Date: 20220721
  Serious: Yes (Other)
  Sender: FDA-Public Use
  Company Number: GB-SYNTHON BV-IN51PV21_60955

PATIENT
  Age: 61 Year
  Sex: Male
  Weight: 85 kg

DRUGS (1)
  1. TAMSULOSIN [Suspect]
     Active Substance: TAMSULOSIN
     Indication: Prostatomegaly
     Dosage: 400 MICROGRAM
     Route: 048
     Dates: start: 20210729, end: 20210731

REACTIONS (2)
  - Back pain [Recovered/Resolved]
  - Arthralgia [Unknown]

NARRATIVE: CASE EVENT DATE: 20210729
